FAERS Safety Report 4827467-9 (Version None)
Quarter: 2005Q4

REPORT INFORMATION
  Report Type: 
  Country: None (occurrence: None)
  Receive Date: 20051114
  Receipt Date: 20051102
  Transmission Date: 20060501
  Serious: Yes (Death)
  Sender: FDA-Public Use
  Company Number: ES-ROCHE-423495

PATIENT
  Age: 52 Year
  Sex: Female

DRUGS (3)
  1. PEGYLATED INTERFERON NOS [Suspect]
     Route: 065
  2. RIBAVIRIN [Suspect]
     Route: 065
  3. INTERFERON ALFA [Suspect]
     Route: 065

REACTIONS (1)
  - SARCOIDOSIS [None]
